FAERS Safety Report 7892121-6 (Version None)
Quarter: 2011Q4

REPORT INFORMATION
  Report Type: 
  Country: None (occurrence: None)
  Receive Date: 20111103
  Receipt Date: 20110815
  Transmission Date: 20120403
  Serious: No
  Sender: FDA-Public Use
  Company Number: US-AMGEN-USASP2011041482

PATIENT
  Sex: Female

DRUGS (2)
  1. METHOTREXATE [Concomitant]
     Dosage: 3 MG, 2 TIMES/WK
     Dates: start: 20110201
  2. ENBREL [Suspect]
     Indication: RHEUMATOID ARTHRITIS
     Dosage: 50 MG, QWK
     Dates: start: 20110412

REACTIONS (3)
  - PAIN IN EXTREMITY [None]
  - DRUG EFFECT DECREASED [None]
  - MUSCULOSKELETAL STIFFNESS [None]
